FAERS Safety Report 7736383-4 (Version None)
Quarter: 2011Q3

REPORT INFORMATION
  Report Type: 
  Country: None (occurrence: None)
  Receive Date: 20110817
  Receipt Date: 20101115
  Transmission Date: 20111222
  Serious: Yes (Other)
  Sender: FDA-Public Use
  Company Number: 20108653

PATIENT
  Sex: Male

DRUGS (4)
  1. FENTANYL-100 [Concomitant]
  2. CLONIDINE [Concomitant]
  3. LIORESAL [Suspect]
     Indication: MUSCLE SPASTICITY
     Dosage: SEE B5 MCG, DAILY, INTRATHECAL
     Route: 037
  4. BUPIVACAINE HCL [Concomitant]

REACTIONS (1)
  - PAIN [None]
